FAERS Safety Report 5269589-7 (Version None)
Quarter: 2007Q1

REPORT INFORMATION
  Report Type: 
  Country: None (occurrence: None)
  Receive Date: 20070314
  Receipt Date: 20070226
  Transmission Date: 20070707
  Serious: Yes (Other)
  Sender: FDA-Public Use
  Company Number: 8021733

PATIENT
  Age: 24 Year
  Sex: Female

DRUGS (1)
  1. KEPPRA [Suspect]
     Indication: GRAND MAL CONVULSION
     Dosage: 1250 MG/D
     Dates: start: 20061102

REACTIONS (5)
  - ANOREXIA [None]
  - DRUG EXPOSURE DURING PREGNANCY [None]
  - FATIGUE [None]
  - IRRITABILITY [None]
  - UNINTENDED PREGNANCY [None]
